FAERS Safety Report 4999614-X (Version None)
Quarter: 2006Q2

REPORT INFORMATION
  Report Type: 
  Country: None (occurrence: None)
  Receive Date: 20060511
  Receipt Date: 20051026
  Transmission Date: 20061013
  Serious: Yes (Hospitalization)
  Sender: FDA-Public Use
  Company Number: US-MERCK-0510USA09488

PATIENT
  Age: 57 Year
  Sex: Female
  Weight: 59 kg

DRUGS (57)
  1. TETRACYCLINE [Concomitant]
     Route: 065
  2. TUSSIONEX [Concomitant]
     Route: 065
  3. URIMAX [Concomitant]
     Route: 065
  4. URISED TABLETS [Concomitant]
     Route: 065
  5. VICODIN [Concomitant]
     Route: 065
  6. ZITHROMAX [Concomitant]
     Route: 065
  7. SYNTHROID [Concomitant]
     Route: 065
  8. VIOXX [Suspect]
     Indication: SYSTEMIC LUPUS ERYTHEMATOSUS
     Route: 048
     Dates: start: 20000204, end: 20040913
  9. VIOXX [Suspect]
     Indication: ARTHRITIS
     Route: 048
     Dates: start: 20000204, end: 20040913
  10. ALPRAZOLAM [Concomitant]
     Route: 065
  11. ALTACE [Concomitant]
     Route: 065
  12. AMIODARONA [Concomitant]
     Route: 065
  13. AMITRIPTYLIN [Concomitant]
     Route: 065
  14. AMOXICILLIN [Concomitant]
     Route: 065
  15. ATENOLOL [Concomitant]
     Route: 065
  16. AUGMENTIN '125' [Concomitant]
     Route: 065
  17. BACTROBAN [Concomitant]
     Route: 065
  18. CALCIUM (UNSPECIFIED) [Concomitant]
     Route: 065
  19. CEFUROXIME [Concomitant]
     Route: 065
  20. CEPHALEXIN [Concomitant]
     Route: 065
  21. CIPRO [Concomitant]
     Route: 065
  22. CLARINEX [Concomitant]
     Route: 065
  23. CLOBETASOL PROPIONATE [Concomitant]
     Route: 065
  24. CLONAZEPAM [Concomitant]
     Route: 065
  25. CLOTRIMAZOLE [Concomitant]
     Route: 065
  26. CYCLOBENZAPRINE HYDROCHLORIDE [Concomitant]
     Route: 065
  27. DARVOCET-N 100 [Concomitant]
     Route: 065
  28. DELTASONE [Concomitant]
     Route: 065
  29. CASANTHRANOL AND DOCUSATE POTASSIUM [Concomitant]
     Route: 065
  30. ELMIRON [Concomitant]
     Route: 065
  31. EVOXAC [Concomitant]
     Route: 065
  32. FOSAMAX [Concomitant]
     Route: 065
  33. FUROSEMIDE [Concomitant]
     Route: 065
  34. HYDROXYCHLOROQUINE SULFATE [Concomitant]
     Route: 065
  35. KLOR-CON [Concomitant]
     Route: 065
  36. LEVOTHYROXINE SODIUM [Concomitant]
     Route: 065
  37. LIPITOR [Concomitant]
     Route: 065
  38. MACROBID [Concomitant]
     Route: 065
  39. MERIDIA [Concomitant]
     Route: 065
  40. METOCLOPRAMIDE [Concomitant]
     Route: 065
  41. NEURONTIN [Concomitant]
     Route: 065
  42. NITROFURANTOIN [Concomitant]
     Route: 065
  43. NITROSTAT [Concomitant]
     Route: 065
  44. NULYTELY [Concomitant]
     Route: 065
  45. NYSTATIN [Concomitant]
     Route: 065
  46. PAXIL [Concomitant]
     Route: 065
  47. PERCOCET [Concomitant]
     Route: 065
  48. PHENAZOPYRIDINE HYDROCHLORIDE [Concomitant]
     Route: 065
  49. PLAVIX [Concomitant]
     Route: 065
  50. PREMARIN [Concomitant]
     Route: 065
  51. PREVACID [Concomitant]
     Route: 065
  52. OMEPRAZOLE [Concomitant]
     Route: 065
  53. PROMETHAZINE [Concomitant]
     Route: 065
  54. PROTONIX [Concomitant]
     Route: 065
  55. SALAGEN [Concomitant]
     Route: 065
  56. SONATA [Concomitant]
     Route: 065
  57. TAMOXIFEN CITRATE [Concomitant]
     Route: 065

REACTIONS (16)
  - ANGINA PECTORIS [None]
  - ANGINA UNSTABLE [None]
  - ARTERIOSCLEROSIS CORONARY ARTERY [None]
  - AZOTAEMIA [None]
  - CARDIAC DISORDER [None]
  - CORONARY ARTERY OCCLUSION [None]
  - CORONARY ARTERY REOCCLUSION [None]
  - CYSTITIS [None]
  - DYSPNOEA [None]
  - HEADACHE [None]
  - INTERVERTEBRAL DISC DISORDER [None]
  - LEUKOPENIA [None]
  - MYOCARDIAL ISCHAEMIA [None]
  - POLYTRAUMATISM [None]
  - ULCER [None]
  - URETHRAL DISORDER [None]
